FAERS Safety Report 22589019 (Version 2)
Quarter: 2023Q2

REPORT INFORMATION
  Report Type: Spontaneous
  Country: US (occurrence: US)
  Receive Date: 20230612
  Receipt Date: 20230613
  Transmission Date: 20230722
  Serious: Yes (Life-Threatening, Other)
  Sender: FDA-Public Use
  Company Number: US-PFIZER INC-PV202300100964

PATIENT
  Age: 41 Year
  Sex: Female

DRUGS (3)
  1. TESTOSTERONE CYPIONATE [Suspect]
     Active Substance: TESTOSTERONE CYPIONATE
     Indication: Transgender hormonal therapy
     Dosage: UNK UNK, WEEKLY
     Route: 030
     Dates: start: 2016
  2. TESTOSTERONE CYPIONATE [Suspect]
     Active Substance: TESTOSTERONE CYPIONATE
     Dosage: 30 MG, WEEKLY (LOW-DOSE)
     Route: 030
  3. ANASTROZOLE [Concomitant]
     Active Substance: ANASTROZOLE
     Dosage: UNK
     Dates: start: 2016

REACTIONS (3)
  - Endometrial adenocarcinoma [Unknown]
  - Off label use [Unknown]
  - Product use issue [Unknown]
